FAERS Safety Report 7137264-X (Version None)
Quarter: 2010Q4

REPORT INFORMATION
  Report Type: 
  Country: None (occurrence: None)
  Receive Date: 20101206
  Receipt Date: 20101122
  Transmission Date: 20110411
  Serious: Yes (Hospitalization, Other)
  Sender: FDA-Public Use
  Company Number: PHHY2010BR80170

PATIENT
  Sex: Female

DRUGS (1)
  1. DIOVAN HCT [Suspect]
     Indication: HYPERTENSION
     Dosage: 1 DF, UNK
     Route: 048

REACTIONS (7)
  - DEVICE RELATED INFECTION [None]
  - INTERNAL FIXATION OF FRACTURE [None]
  - JOINT DISLOCATION [None]
  - KNEE OPERATION [None]
  - LIMB PROSTHESIS USER [None]
  - PAIN IN EXTREMITY [None]
  - TIBIA FRACTURE [None]
